FAERS Safety Report 4374982-0 (Version None)
Quarter: 2004Q2

REPORT INFORMATION
  Report Type: 
  Country: None (occurrence: None)
  Receive Date: 20040604
  Receipt Date: 20040524
  Transmission Date: 20050107
  Serious: Yes (Life-Threatening, Hospitalization, Other)
  Sender: FDA-Public Use
  Company Number: 2004022428

PATIENT
  Age: 49 Year
  Sex: Female

DRUGS (12)
  1. LIPITOR [Suspect]
     Indication: HYPERLIPIDAEMIA
     Dosage: 10 MG (DAILY), ORAL
     Route: 048
     Dates: start: 20040106, end: 20040327
  2. IMIPRAMINE HCL [Suspect]
     Indication: DEPRESSION
     Dosage: 75 MG (TID), ORAL
     Route: 048
     Dates: start: 20021201, end: 20040327
  3. SULPIRIDE (SULPIRIDE) [Suspect]
     Indication: DEPRESSION
     Dosage: 150 MG (TID), ORAL
     Route: 048
     Dates: start: 20030508, end: 20040327
  4. CLOXAZOLAM (CLOXAZOLAM) [Suspect]
     Indication: DEPRESSION
     Dosage: 6 MG (TID), ORAL
     Route: 048
     Dates: start: 20020601, end: 20040327
  5. LOXOPROFEN SODIUM (LOXOPROFEN SODIUM) [Suspect]
     Indication: ILL-DEFINED DISORDER
     Dosage: ORAL
     Route: 048
     Dates: end: 20040101
  6. TRAZODONE HCL [Suspect]
     Indication: ILL-DEFINED DISORDER
     Dosage: 25 MG, ORAL
     Route: 048
     Dates: end: 20040101
  7. AMLODIPINE [Concomitant]
  8. CARTEOLOL (CARTEOLOL) [Concomitant]
  9. FEXOFENADINE HCL [Concomitant]
  10. MEQUITAZINE (MEQUITAZINE) [Concomitant]
  11. OXATOMIDE [Concomitant]
  12. ALFOQUALONE (AFOQUALONE) [Concomitant]

REACTIONS (6)
  - CEREBRAL INFARCTION [None]
  - CHROMATURIA [None]
  - DEPRESSED LEVEL OF CONSCIOUSNESS [None]
  - DIABETES MELLITUS INADEQUATE CONTROL [None]
  - RENAL FAILURE ACUTE [None]
  - RHABDOMYOLYSIS [None]
